FAERS Safety Report 6892705-8 (Version None)
Quarter: 2010Q3

REPORT INFORMATION
  Report Type: 
  Country: None (occurrence: None)
  Receive Date: 20100731
  Receipt Date: 20080819
  Transmission Date: 20110219
  Serious: No
  Sender: FDA-Public Use
  Company Number: US-PFIZER INC-2008060072

PATIENT
  Sex: Female

DRUGS (4)
  1. GABAPENTIN [Suspect]
     Indication: HERPES ZOSTER
     Dates: start: 20080209
  2. FAMCICLOVIR [Suspect]
     Indication: HERPES ZOSTER
     Dates: start: 20080209
  3. ORTHO TRI-CYCLEN [Concomitant]
     Dates: start: 20071220
  4. ULTRACET [Concomitant]
     Dates: start: 20080209, end: 20080201

REACTIONS (3)
  - HEADACHE [None]
  - NAUSEA [None]
  - VOMITING [None]
